FAERS Safety Report 14519790 (Version 2)
Quarter: 2018Q2

REPORT INFORMATION
  Report Type: Report from Study
  Country: ES (occurrence: ES)
  Receive Date: 20180212
  Receipt Date: 20180412
  Transmission Date: 20180711
  Serious: Yes (Hospitalization)
  Sender: FDA-Public Use
  Company Number: ES-LPDUSPRD-20180129

PATIENT
  Sex: Female
  Weight: 86 kg

DRUGS (8)
  1. VENOFER [Suspect]
     Active Substance: IRON SUCROSE
     Dosage: UNKNOWN
     Route: 065
     Dates: start: 2017, end: 2017
  2. ACFOL [Concomitant]
     Active Substance: FOLIC ACID
     Dosage: 1 DOSAGE FORMS, 1 IN 1 WK
     Route: 048
  3. TORASEMIDE [Concomitant]
     Active Substance: TORSEMIDE
     Dosage: 1 IN 1 D
     Route: 048
  4. SIMVASTATIN. [Concomitant]
     Active Substance: SIMVASTATIN
     Dosage: 1 IN 1 D
     Route: 048
  5. METHOTREXATE. [Concomitant]
     Active Substance: METHOTREXATE
     Dosage: 15 MG, 1 IN 1 WK
     Route: 058
  6. OMEPRAZOLE. [Concomitant]
     Active Substance: OMEPRAZOLE
     Dosage: 1 IN 1 D
     Route: 048
  7. HUMIRA [Suspect]
     Active Substance: ADALIMUMAB
     Dosage: 40 MG, 3 IN 1 WK
     Route: 058
     Dates: start: 2015, end: 201707
  8. TRAMADOL. [Concomitant]
     Active Substance: TRAMADOL
     Dosage: AS NEEDED FOR PAIN
     Route: 048

REACTIONS (7)
  - Intestinal polyp [Unknown]
  - Intestinal ischaemia [Unknown]
  - Bleeding varicose vein [Unknown]
  - Helicobacter infection [Unknown]
  - Post procedural discomfort [Unknown]
  - Anaemia [Unknown]
  - Nausea [Unknown]

NARRATIVE: CASE EVENT DATE: 201506
